FAERS Safety Report 5150696-4 (Version None)
Quarter: 2006Q4

REPORT INFORMATION
  Report Type: 
  Country: None (occurrence: None)
  Receive Date: 20061114
  Receipt Date: 20061106
  Transmission Date: 20070319
  Serious: Yes (Other)
  Sender: FDA-Public Use
  Company Number: GB-JNJFOC-20061102344

PATIENT
  Sex: Male

DRUGS (2)
  1. IMODIUM [Suspect]
     Indication: SHORT-BOWEL SYNDROME
  2. IMODIUM [Suspect]
     Indication: DIARRHOEA

REACTIONS (4)
  - NOCTURIA [None]
  - PROSTATE EXAMINATION ABNORMAL [None]
  - URINARY RETENTION [None]
  - URINE FLOW DECREASED [None]
